FAERS Safety Report 16223576 (Version 1)
Quarter: 2019Q2

REPORT INFORMATION
  Report Type: Spontaneous
  Country: JP (occurrence: JP)
  Receive Date: 20190422
  Receipt Date: 20190422
  Transmission Date: 20190711
  Serious: Yes (Other)
  Sender: FDA-Public Use
  Company Number: JP-MYE-2019M1035650AA

PATIENT
  Age: 90 Year
  Sex: Female

DRUGS (6)
  1. BIOFERMIN                          /01617201/ [Suspect]
     Active Substance: DIETARY SUPPLEMENT\PROBIOTICS
     Indication: PRODUCT USED FOR UNKNOWN INDICATION
     Dosage: UNK
     Route: 065
  2. VIVIANT [Suspect]
     Active Substance: BAZEDOXIFENE
     Indication: OSTEOPOROSIS
     Dosage: 20 MILLIGRAM
     Route: 048
  3. MAGNESIUM OXIDE. [Suspect]
     Active Substance: MAGNESIUM OXIDE
     Indication: PRODUCT USED FOR UNKNOWN INDICATION
     Dosage: UNK
     Route: 065
  4. NIFEDIPINE. [Suspect]
     Active Substance: NIFEDIPINE
     Indication: HYPERTENSION
     Dosage: 15 MILLIGRAM
     Route: 048
  5. GANATON TABLETS 50MG [Suspect]
     Active Substance: ITOPRIDE HYDROCHLORIDE
     Indication: PRODUCT USED FOR UNKNOWN INDICATION
     Dosage: 150 MILLIGRAM
     Route: 048
  6. LANSOPRAZOLE. [Suspect]
     Active Substance: LANSOPRAZOLE
     Indication: PRODUCT USED FOR UNKNOWN INDICATION
     Dosage: 15 MILLIGRAM
     Route: 048

REACTIONS (1)
  - Cerebral infarction [Recovered/Resolved]

NARRATIVE: CASE EVENT DATE: 20190404
